FAERS Safety Report 15870856 (Version 1)
Quarter: 2019Q1

REPORT INFORMATION
  Report Type: Other
  Country: US (occurrence: US)
  Receive Date: 20190126
  Receipt Date: 20190126
  Transmission Date: 20190417
  Serious: No
  Sender: FDA-Public Use
  Company Number: US-ACORDA-ACO_154558_2018

PATIENT
  Sex: Female

DRUGS (4)
  1. DIFLUCAN [Suspect]
     Active Substance: FLUCONAZOLE
     Indication: CYSTIC FIBROSIS
     Dosage: UNK
     Route: 065
  2. LEVAQUIN [Suspect]
     Active Substance: LEVOFLOXACIN
     Indication: CYSTIC FIBROSIS
     Dosage: UNK
     Route: 065
  3. AMPYRA [Suspect]
     Active Substance: DALFAMPRIDINE
     Indication: MULTIPLE SCLEROSIS
  4. AMPYRA [Suspect]
     Active Substance: DALFAMPRIDINE
     Indication: GAIT DISTURBANCE
     Dosage: 10 MILLIGRAM, BID
     Route: 048
     Dates: start: 2015

REACTIONS (1)
  - Fungal infection [Unknown]
